FAERS Safety Report 9514512 (Version 5)
Quarter: 2013Q4

REPORT INFORMATION
  Report Type: Report from Study
  Country: AR (occurrence: AR)
  Receive Date: 20130911
  Receipt Date: 20131127
  Transmission Date: 20140711
  Serious: Yes (Other)
  Sender: FDA-Public Use
  Company Number: AR-ROCHE-1271405

PATIENT
  Sex: Female

DRUGS (1)
  1. RANIBIZUMAB [Suspect]
     Indication: MACULOPATHY
     Route: 050
     Dates: start: 2010

REACTIONS (9)
  - Maculopathy [Recovering/Resolving]
  - Eye haemorrhage [Recovering/Resolving]
  - Vitreous haemorrhage [Recovering/Resolving]
  - Onychomadesis [Recovering/Resolving]
  - Nail discolouration [Recovering/Resolving]
  - Pyrexia [Unknown]
  - Throat irritation [Unknown]
  - Cough [Unknown]
  - Drug ineffective [Unknown]
